FAERS Safety Report 12475126 (Version 5)
Quarter: 2017Q2

REPORT INFORMATION
  Report Type: Report from Study
  Country: US (occurrence: US)
  Receive Date: 20160617
  Receipt Date: 20170502
  Transmission Date: 20170830
  Serious: Yes (Hospitalization)
  Sender: FDA-Public Use
  Company Number: US-B.I. PHARMACEUTICALS,INC./RIDGEFIELD-2016-BI-16595BP

PATIENT
  Age: 66 Year
  Sex: Male
  Weight: 112.94 kg

DRUGS (2)
  1. OFEV [Suspect]
     Active Substance: NINTEDANIB
     Indication: PULMONARY FIBROSIS
     Route: 065
     Dates: start: 201602
  2. OFEV [Suspect]
     Active Substance: NINTEDANIB
     Indication: IDIOPATHIC PULMONARY FIBROSIS
     Route: 048
     Dates: start: 20160223

REACTIONS (11)
  - Dyspnoea [Not Recovered/Not Resolved]
  - Hypoaesthesia [Unknown]
  - Sputum discoloured [Unknown]
  - Hyperhidrosis [Unknown]
  - Productive cough [Not Recovered/Not Resolved]
  - Dyspnoea [Unknown]
  - Drug ineffective [Unknown]
  - Dyspnoea [Not Recovered/Not Resolved]
  - Weight increased [Unknown]
  - Cough [Unknown]
  - Viral upper respiratory tract infection [Unknown]

NARRATIVE: CASE EVENT DATE: 20170221
